FAERS Safety Report 18932816 (Version 1)
Quarter: 2021Q1

REPORT INFORMATION
  Report Type: Report from Study
  Country: US (occurrence: US)
  Receive Date: 20210224
  Receipt Date: 20210224
  Transmission Date: 20210420
  Serious: Yes (Death)
  Sender: FDA-Public Use
  Company Number: US-UCBSA-2021007639

PATIENT
  Age: 59 Year
  Sex: Male

DRUGS (1)
  1. LACOSAMIDE. [Suspect]
     Active Substance: LACOSAMIDE
     Indication: SEIZURE
     Dosage: 10 MILLILITER, 2X/DAY (BID)
     Route: 048
     Dates: end: 20210130

REACTIONS (1)
  - Death [Fatal]

NARRATIVE: CASE EVENT DATE: 20210130
